FAERS Safety Report 24057328 (Version 2)
Quarter: 2024Q3

REPORT INFORMATION
  Report Type: Spontaneous
  Country: KR (occurrence: KR)
  Receive Date: 20240706
  Receipt Date: 20240717
  Transmission Date: 20241016
  Serious: Yes (Disabling, Other)
  Sender: ACCORD
  Company Number: KR-Accord-432984

PATIENT
  Age: 79 Year
  Sex: Male

DRUGS (6)
  1. CARBOPLATIN [Suspect]
     Active Substance: CARBOPLATIN
     Indication: Small cell lung cancer metastatic
  2. ETOPOSIDE [Suspect]
     Active Substance: ETOPOSIDE
     Indication: Small cell lung cancer metastatic
     Dosage: RECEIVED TWO CYCLES
  3. ATEZOLIZUMAB [Suspect]
     Active Substance: ATEZOLIZUMAB
     Indication: Small cell lung cancer metastatic
  4. CARBOPLATIN [Suspect]
     Active Substance: CARBOPLATIN
     Indication: Metastases to abdominal cavity
  5. ATEZOLIZUMAB [Suspect]
     Active Substance: ATEZOLIZUMAB
     Indication: Metastases to abdominal cavity
  6. ETOPOSIDE [Suspect]
     Active Substance: ETOPOSIDE
     Indication: Metastases to abdominal cavity
     Dosage: RECEIVED TWO CYCLES

REACTIONS (7)
  - Optic ischaemic neuropathy [Not Recovered/Not Resolved]
  - Optic atrophy [Not Recovered/Not Resolved]
  - Blindness [Not Recovered/Not Resolved]
  - Retinal degeneration [Not Recovered/Not Resolved]
  - Arteriosclerotic retinopathy [Not Recovered/Not Resolved]
  - Retinal artery stenosis [Not Recovered/Not Resolved]
  - Cystoid macular oedema [Not Recovered/Not Resolved]
